FAERS Safety Report 14919061 (Version 1)
Quarter: 2018Q2

REPORT INFORMATION
  Report Type: Spontaneous
  Country: AF (occurrence: AF)
  Receive Date: 20180502
  Receipt Date: 20180502
  Transmission Date: 20180711
  Serious: Yes (Death)
  Sender: FDA-Public Use
  Company Number: None

PATIENT
  Age: 61 Year
  Sex: Male
  Weight: 90 kg

DRUGS (6)
  1. XELJANZ XR [Suspect]
     Active Substance: TOFACITINIB CITRATE
     Indication: PSORIATIC ARTHROPATHY
     Dosage: ?          QUANTITY:1 TABLET(S);?
     Route: 048
  2. ALEVE [Concomitant]
     Active Substance: NAPROXEN SODIUM
  3. XELJANZ [Concomitant]
     Active Substance: TOFACITINIB CITRATE
  4. PRAVASTATIN. [Concomitant]
     Active Substance: PRAVASTATIN
  5. LOSARTAN. [Concomitant]
     Active Substance: LOSARTAN
  6. ASA [Concomitant]
     Active Substance: ASPIRIN

REACTIONS (1)
  - Coronary artery thrombosis [None]

NARRATIVE: CASE EVENT DATE: 20180428
